FAERS Safety Report 7467244-6 (Version None)
Quarter: 2011Q2

REPORT INFORMATION
  Report Type: 
  Country: None (occurrence: None)
  Receive Date: 20110509
  Receipt Date: 20110506
  Transmission Date: 20111010
  Serious: Yes (Other)
  Sender: FDA-Public Use
  Company Number: PHHO2011US05832

PATIENT
  Sex: Male

DRUGS (8)
  1. BACTRIM [Concomitant]
  2. PROLEUKIN [Suspect]
     Indication: MALIGNANT MELANOMA
     Dosage: UNK
     Dates: start: 20090727, end: 20090730
  3. KEPPRA [Concomitant]
  4. CYCLOPHOSPHAMIDE [Concomitant]
  5. ACYCLOVIR [Concomitant]
  6. PROLEUKIN [Suspect]
     Dosage: UNK
     Dates: start: 20100517, end: 20100528
  7. FILGRASTIM [Concomitant]
  8. FLUDARABINE [Concomitant]

REACTIONS (5)
  - NEUTROPHIL COUNT DECREASED [None]
  - LARGE GRANULAR LYMPHOCYTOSIS [None]
  - WHITE BLOOD CELL COUNT DECREASED [None]
  - GRANULOCYTE COUNT DECREASED [None]
  - NEOPLASM MALIGNANT [None]
